FAERS Safety Report 18583443 (Version 1)
Quarter: 2020Q4

REPORT INFORMATION
  Report Type: Spontaneous
  Country: CA (occurrence: US)
  Receive Date: 20201206
  Receipt Date: 20201206
  Transmission Date: 20210114
  Serious: No
  Sender: FDA-Public Use
  Company Number: CA-AMGEN-USASP2020195004

PATIENT
  Age: 66 Year
  Sex: Male

DRUGS (3)
  1. XGEVA [Suspect]
     Active Substance: DENOSUMAB
     Indication: PROSTATE CANCER METASTATIC
     Dosage: UNK
     Route: 065
     Dates: start: 201805
  2. LUPRON [Concomitant]
     Active Substance: LEUPROLIDE ACETATE
  3. ZYTIGA [Concomitant]
     Active Substance: ABIRATERONE ACETATE

REACTIONS (3)
  - Disturbance in attention [Unknown]
  - Somnolence [Unknown]
  - Fatigue [Unknown]
